FAERS Safety Report 7656236-X (Version None)
Quarter: 2011Q3

REPORT INFORMATION
  Report Type: 
  Country: None (occurrence: None)
  Receive Date: 20110804
  Receipt Date: 20110728
  Transmission Date: 20111222
  Serious: Yes (Hospitalization, Other)
  Sender: FDA-Public Use
  Company Number: AU-EISAI INC-E3810-04835-SPO-AU

PATIENT
  Age: 52 Year
  Sex: Male

DRUGS (1)
  1. RABEPRAZOLE SODIUM [Suspect]
     Route: 048

REACTIONS (3)
  - ANAEMIA [None]
  - RENAL FAILURE [None]
  - HYPERTENSION [None]
